FAERS Safety Report 23579096 (Version 3)
Quarter: 2024Q2

REPORT INFORMATION
  Report Type: Spontaneous
  Country: US (occurrence: US)
  Receive Date: 20240229
  Receipt Date: 20240528
  Transmission Date: 20240716
  Serious: Yes (Other)
  Sender: FDA-Public Use
  Company Number: US-ORPHANEU-2024001267

PATIENT

DRUGS (3)
  1. CYSTADANE [Suspect]
     Active Substance: BETAINE
     Indication: Homocystinuria
     Dosage: 833 MILLIGRAM, TID
     Route: 048
     Dates: start: 20211209
  2. CYSTADANE [Suspect]
     Active Substance: BETAINE
     Dosage: 833 MILLIGRAM, TID
     Route: 048
     Dates: start: 20211209
  3. CYANOCOBALAMIN [Concomitant]
     Active Substance: CYANOCOBALAMIN
     Indication: Product used for unknown indication
     Dosage: UNK

REACTIONS (3)
  - Salmonellosis [Recovered/Resolved]
  - Inappropriate schedule of product administration [Recovered/Resolved]
  - Therapy change [Recovered/Resolved]

NARRATIVE: CASE EVENT DATE: 20211209
